FAERS Safety Report 24413011 (Version 2)
Quarter: 2024Q4

REPORT INFORMATION
  Report Type: Spontaneous
  Country: BR (occurrence: BR)
  Receive Date: 20241008
  Receipt Date: 20241125
  Transmission Date: 20250115
  Serious: Yes (Death, Hospitalization)
  Sender: NOVARTIS
  Company Number: BR-002147023-NVSC2024BR197615

PATIENT
  Sex: Male

DRUGS (1)
  1. ENTRESTO [Suspect]
     Active Substance: SACUBITRIL\VALSARTAN
     Indication: Product used for unknown indication
     Dosage: 200 MG
     Route: 065
     Dates: start: 2021, end: 20240815

REACTIONS (5)
  - Disease progression [Fatal]
  - Renal failure [Fatal]
  - Cardiac failure congestive [Fatal]
  - Hypertension [Fatal]
  - Cardiac disorder [Fatal]
